FAERS Safety Report 15896226 (Version 22)
Quarter: 2022Q3

REPORT INFORMATION
  Report Type: Report from Study
  Country: BE (occurrence: None)
  Receive Date: 20190131
  Receipt Date: 20220908
  Transmission Date: 20221027
  Serious: Yes (Hospitalization)
  Sender: FDA-Public Use
  Company Number: BE-ROCHE-2249338

PATIENT
  Age: 67 Year
  Sex: Male
  Weight: 59.1 kg

DRUGS (65)
  1. GLOFITAMAB [Suspect]
     Active Substance: GLOFITAMAB
     Indication: B-cell lymphoma
     Dosage: MOST RECENT DOSE AT 16.54?MOST RECENT DOSE: 15/FEB/2019 AT 14:41?DATE OF MOST RECENT DOSE OF RO70828
     Route: 042
     Dates: start: 20181226
  2. GLOFITAMAB [Suspect]
     Active Substance: GLOFITAMAB
     Dosage: START TIME OF FIRST DOSE ON 17/JAN/2019 AT 15:03?DATE OF MOST RECENT DOSE ON 17/JAN/2019 AT 19:05?DA
     Route: 042
     Dates: start: 20190117, end: 20190117
  3. OBINUTUZUMAB [Suspect]
     Active Substance: OBINUTUZUMAB
     Indication: B-cell lymphoma
     Dosage: AT 14.30? DATE OF MOST RECENT DOSE 18/DEC/2019?DATE OF MOST RECENT DOSE OF OBINUTUZUMAB PRIOR TO 4 T
     Route: 042
     Dates: start: 20181218
  4. ATEZOLIZUMAB [Suspect]
     Active Substance: ATEZOLIZUMAB
     Indication: B-cell lymphoma
     Dosage: MOST RECENT DOSE: 15/FEB/2019 AT 12:46.?07/MAR/2019, AT 14:20 HE RECEIVED INTRAVENOUS ATEZOLIZUMAB 1
     Route: 042
     Dates: start: 20190117
  5. ACYCLOVIR [Concomitant]
     Active Substance: ACYCLOVIR
     Indication: Herpes zoster reactivation
     Dates: start: 20130314
  6. ALLOPURINOL [Concomitant]
     Active Substance: ALLOPURINOL
     Indication: Tumour lysis syndrome
     Dates: start: 20131115
  7. FOLIC ACID [Concomitant]
     Active Substance: FOLIC ACID
     Indication: Folate deficiency
     Dates: start: 20170405, end: 20190102
  8. FOLIC ACID [Concomitant]
     Active Substance: FOLIC ACID
     Dates: start: 20190124
  9. HIZENTRA [Concomitant]
     Active Substance: HUMAN IMMUNOGLOBULIN G
     Indication: Hypogammaglobulinaemia
     Dates: start: 20101020
  10. LORMETAZEPAM [Concomitant]
     Active Substance: LORMETAZEPAM
     Indication: Insomnia
     Dates: start: 2009
  11. PLATELETS [Concomitant]
     Active Substance: HUMAN PLATELET, ALLOGENIC
     Indication: Thrombocytopenia
     Dates: start: 20181121, end: 20181121
  12. PLATELETS [Concomitant]
     Active Substance: HUMAN PLATELET, ALLOGENIC
     Dates: start: 20181203, end: 20181203
  13. PLATELETS [Concomitant]
     Active Substance: HUMAN PLATELET, ALLOGENIC
     Dates: start: 20190218, end: 20190218
  14. FLUCONAZOLE [Concomitant]
     Active Substance: FLUCONAZOLE
     Dates: start: 20181204, end: 20190102
  15. PANTOPRAZOLE SODIUM [Concomitant]
     Active Substance: PANTOPRAZOLE SODIUM
     Indication: Gastrooesophageal reflux disease
     Dates: start: 20121213, end: 20181218
  16. PANTOPRAZOLE SODIUM [Concomitant]
     Active Substance: PANTOPRAZOLE SODIUM
     Indication: Prophylaxis against gastrointestinal ulcer
     Dates: start: 20190124, end: 20190215
  17. PANTOPRAZOLE SODIUM [Concomitant]
     Active Substance: PANTOPRAZOLE SODIUM
     Dates: start: 20190225, end: 20190307
  18. PANTOPRAZOLE SODIUM [Concomitant]
     Active Substance: PANTOPRAZOLE SODIUM
     Dates: start: 20190312, end: 20190329
  19. PANTOPRAZOLE SODIUM [Concomitant]
     Active Substance: PANTOPRAZOLE SODIUM
     Dates: start: 20181220, end: 20181226
  20. PANTOPRAZOLE SODIUM [Concomitant]
     Active Substance: PANTOPRAZOLE SODIUM
     Dates: start: 20181231, end: 20190102
  21. PANTOPRAZOLE SODIUM [Concomitant]
     Active Substance: PANTOPRAZOLE SODIUM
     Dates: start: 20190104, end: 20190117
  22. PANTOPRAZOLE SODIUM [Concomitant]
     Active Substance: PANTOPRAZOLE SODIUM
     Dates: start: 20190403
  23. PANTOPRAZOLE SODIUM [Concomitant]
     Active Substance: PANTOPRAZOLE SODIUM
     Dates: start: 20190604, end: 20190621
  24. PANTOPRAZOLE SODIUM [Concomitant]
     Active Substance: PANTOPRAZOLE SODIUM
     Dates: start: 20190624, end: 20191023
  25. PANTOPRAZOLE SODIUM [Concomitant]
     Active Substance: PANTOPRAZOLE SODIUM
     Dates: start: 20191025
  26. PANTOPRAZOLE SODIUM [Concomitant]
     Active Substance: PANTOPRAZOLE SODIUM
     Dates: start: 20190514, end: 20190531
  27. PANTOPRAZOLE SODIUM [Concomitant]
     Active Substance: PANTOPRAZOLE SODIUM
     Dates: start: 20190423, end: 20190509
  28. PANTOPRAZOLE SODIUM [Concomitant]
     Active Substance: PANTOPRAZOLE SODIUM
     Dates: start: 20190312, end: 20190329
  29. PANTOPRAZOLE SODIUM [Concomitant]
     Active Substance: PANTOPRAZOLE SODIUM
     Dates: start: 20190403, end: 20190418
  30. PANTOPRAZOLE SODIUM [Concomitant]
     Active Substance: PANTOPRAZOLE SODIUM
     Dates: start: 20190225, end: 20190307
  31. PANTOPRAZOLE SODIUM [Concomitant]
     Active Substance: PANTOPRAZOLE SODIUM
     Dates: start: 20181220, end: 20181226
  32. PANTOPRAZOLE SODIUM [Concomitant]
     Active Substance: PANTOPRAZOLE SODIUM
     Dates: start: 20181231, end: 20190102
  33. ULTRA K [Concomitant]
     Dates: start: 20180326, end: 20190515
  34. BISOPROLOL [Concomitant]
     Active Substance: BISOPROLOL
     Indication: Hypertension
     Dates: start: 20180621
  35. LASIX [Concomitant]
     Active Substance: FUROSEMIDE
     Dates: start: 20190219, end: 20190219
  36. HUMAN RED BLOOD CELL [Concomitant]
     Active Substance: HUMAN RED BLOOD CELL
     Indication: Anaemia
     Dates: start: 20190119, end: 20190119
  37. OMEPRAZOLE [Concomitant]
     Active Substance: OMEPRAZOLE
     Indication: Prophylaxis against gastrointestinal ulcer
     Dates: start: 20181219, end: 20181219
  38. OMEPRAZOLE [Concomitant]
     Active Substance: OMEPRAZOLE
     Dates: start: 20190216, end: 20190224
  39. OMEPRAZOLE [Concomitant]
     Active Substance: OMEPRAZOLE
     Dates: start: 20190308, end: 20190311
  40. OMEPRAZOLE [Concomitant]
     Active Substance: OMEPRAZOLE
     Dates: start: 20190330, end: 20190402
  41. OMEPRAZOLE [Concomitant]
     Active Substance: OMEPRAZOLE
     Dates: start: 20181227, end: 20181230
  42. OMEPRAZOLE [Concomitant]
     Active Substance: OMEPRAZOLE
     Dates: start: 20190103, end: 20190103
  43. OMEPRAZOLE [Concomitant]
     Active Substance: OMEPRAZOLE
     Dates: start: 20190118, end: 20190123
  44. OMEPRAZOLE [Concomitant]
     Active Substance: OMEPRAZOLE
     Dates: start: 20190622, end: 20190623
  45. OMEPRAZOLE [Concomitant]
     Active Substance: OMEPRAZOLE
     Dates: start: 20191023, end: 20191024
  46. OMEPRAZOLE [Concomitant]
     Active Substance: OMEPRAZOLE
     Dates: start: 20190510, end: 20190513
  47. OMEPRAZOLE [Concomitant]
     Active Substance: OMEPRAZOLE
     Dates: start: 20190601, end: 20190603
  48. OMEPRAZOLE [Concomitant]
     Active Substance: OMEPRAZOLE
     Dates: start: 20190419, end: 20190422
  49. OMEPRAZOLE [Concomitant]
     Active Substance: OMEPRAZOLE
     Dates: start: 20190330, end: 20190402
  50. OMEPRAZOLE [Concomitant]
     Active Substance: OMEPRAZOLE
     Dates: start: 20190308, end: 20190311
  51. OMEPRAZOLE [Concomitant]
     Active Substance: OMEPRAZOLE
     Dates: start: 20181219, end: 20181219
  52. OMEPRAZOLE [Concomitant]
     Active Substance: OMEPRAZOLE
     Dates: start: 20181227, end: 20181230
  53. OMEPRAZOLE [Concomitant]
     Active Substance: OMEPRAZOLE
     Dates: start: 20190103, end: 20190103
  54. FILGRASTIM [Concomitant]
     Active Substance: FILGRASTIM
     Indication: Neutropenia
     Dates: start: 20190216, end: 20190223
  55. FILGRASTIM [Concomitant]
     Active Substance: FILGRASTIM
     Dates: start: 20190208, end: 20190215
  56. NESIVINE [Concomitant]
     Indication: Chronic sinusitis
     Dates: start: 20190308, end: 20190417
  57. MAGNESIUM [Concomitant]
     Active Substance: MAGNESIUM
     Indication: Hypomagnesaemia
     Dates: start: 20190510
  58. URSODIOL [Concomitant]
     Active Substance: URSODIOL
     Indication: Gamma-glutamyltransferase increased
     Dates: start: 20190308
  59. URSODIOL [Concomitant]
     Active Substance: URSODIOL
     Dates: start: 20190223, end: 20190307
  60. FLUCONAZOLE [Concomitant]
     Active Substance: FLUCONAZOLE
     Indication: Infection prophylaxis
     Dates: start: 20190314, end: 20190510
  61. NASIVINE [Concomitant]
     Indication: Chronic sinusitis
     Dates: start: 20190308, end: 20190417
  62. SEA WATER [Concomitant]
     Active Substance: SEA WATER
     Indication: Chronic sinusitis
     Route: 045
     Dates: start: 20190307, end: 20190417
  63. BACTRIM [Concomitant]
     Active Substance: SULFAMETHOXAZOLE\TRIMETHOPRIM
     Indication: Infection prophylaxis
     Dates: start: 20180601, end: 20190104
  64. BACTRIM [Concomitant]
     Active Substance: SULFAMETHOXAZOLE\TRIMETHOPRIM
     Dates: start: 20190314
  65. DENTIO [Concomitant]
     Indication: Prophylaxis
     Dates: start: 20190329, end: 20191024

REACTIONS (4)
  - Cytokine release syndrome [Recovered/Resolved]
  - Acute kidney injury [Recovered/Resolved]
  - Cytokine release syndrome [Recovered/Resolved]
  - Device related infection [Recovered/Resolved]

NARRATIVE: CASE EVENT DATE: 20181228
